FAERS Safety Report 26059823 (Version 1)
Quarter: 2025Q4

REPORT INFORMATION
  Report Type: Spontaneous
  Country: US (occurrence: US)
  Receive Date: 20251118
  Receipt Date: 20251118
  Transmission Date: 20260117
  Serious: No
  Sender: ROCHE
  Company Number: US-ROCHE-10000436475

PATIENT
  Sex: Female

DRUGS (1)
  1. XOLAIR [Suspect]
     Active Substance: OMALIZUMAB
     Indication: Food allergy
     Route: 058
     Dates: start: 20250811, end: 20251013

REACTIONS (3)
  - Eczema [Not Recovered/Not Resolved]
  - Erythema [Not Recovered/Not Resolved]
  - Erythema of eyelid [Not Recovered/Not Resolved]
